FAERS Safety Report 19963319 (Version 2)
Quarter: 2022Q1

REPORT INFORMATION
  Report Type: Other
  Country: IL (occurrence: None)
  Receive Date: 20211018
  Receipt Date: 20220211
  Transmission Date: 20220424
  Serious: Yes (Other)
  Sender: FDA-Public Use
  Company Number: IL-ROCHE-2935562

PATIENT
  Age: 36 Year
  Sex: Male

DRUGS (8)
  1. RITUXIMAB [Suspect]
     Active Substance: RITUXIMAB
     Indication: Diffuse large B-cell lymphoma
     Route: 065
  2. DOXYCYCLINE [Concomitant]
     Active Substance: DOXYCYCLINE
  3. PIPERACILLIN SODIUM\TAZOBACTAM SODIUM [Concomitant]
     Active Substance: PIPERACILLIN SODIUM\TAZOBACTAM SODIUM
  4. VORICONAZOLE [Concomitant]
     Active Substance: VORICONAZOLE
  5. LEVOFLOXACIN [Concomitant]
     Active Substance: LEVOFLOXACIN
  6. ENOXAPARIN [Concomitant]
     Active Substance: ENOXAPARIN
  7. METHYLPREDNISOLONE [Concomitant]
     Active Substance: METHYLPREDNISOLONE
  8. PREDNISONE [Concomitant]
     Active Substance: PREDNISONE

REACTIONS (2)
  - COVID-19 [Recovered/Resolved]
  - Pneumonia [Unknown]
